FAERS Safety Report 17696705 (Version 2)
Quarter: 2020Q2

REPORT INFORMATION
  Report Type: Spontaneous
  Country: US (occurrence: US)
  Receive Date: 20200423
  Receipt Date: 20200507
  Transmission Date: 20200714
  Serious: Yes (Other)
  Sender: FDA-Public Use
  Company Number: US-GLAXOSMITHKLINE-US2020066215

PATIENT
  Age: 67 Year
  Sex: Male

DRUGS (1)
  1. ADVAIR HFA [Suspect]
     Active Substance: FLUTICASONE PROPIONATE\SALMETEROL XINAFOATE
     Indication: CHRONIC OBSTRUCTIVE PULMONARY DISEASE
     Dosage: 2 PUFF(S), BID
     Route: 065
     Dates: start: 2018

REACTIONS (5)
  - Product dose omission [Recovered/Resolved]
  - Pneumonia [Recovering/Resolving]
  - Product complaint [Unknown]
  - Productive cough [Unknown]
  - Drug ineffective [Unknown]

NARRATIVE: CASE EVENT DATE: 20200325
